FAERS Safety Report 9357601 (Version 3)
Quarter: 2014Q1

REPORT INFORMATION
  Report Type: Spontaneous
  Country: US (occurrence: US)
  Receive Date: 20130620
  Receipt Date: 20140128
  Transmission Date: 20141002
  Serious: Yes (Hospitalization, Other)
  Sender: FDA-Public Use
  Company Number: US-BAYER-2013-073831

PATIENT
  Age: 23 Year
  Sex: Female
  Weight: 81.63 kg

DRUGS (3)
  1. YASMIN [Suspect]
     Indication: POLYCYSTIC OVARIES
     Dosage: UNK
     Dates: start: 2003, end: 2010
  2. OCELLA [Suspect]
     Indication: POLYCYSTIC OVARIES
     Dosage: UNK
     Dates: start: 2003, end: 2010
  3. LOESTRIN [Concomitant]
     Indication: POLYCYSTIC OVARIES
     Dosage: UNK
     Dates: start: 2010, end: 201301

REACTIONS (9)
  - Biliary colic [None]
  - Injury [None]
  - Emotional distress [None]
  - Thrombosis [None]
  - Abdominal pain [None]
  - Vomiting [None]
  - Dehydration [None]
  - Off label use [None]
  - Cholecystitis chronic [None]
